FAERS Safety Report 18682738 (Version 1)
Quarter: 2020Q4

REPORT INFORMATION
  Report Type: Spontaneous
  Country: CN (occurrence: CN)
  Receive Date: 20201230
  Receipt Date: 20201230
  Transmission Date: 20210114
  Serious: Yes (Life-Threatening)
  Sender: FDA-Public Use
  Company Number: CN-BEH-2020126655

PATIENT
  Age: 29 Year
  Sex: Female
  Weight: 54 kg

DRUGS (1)
  1. ALBURX [Suspect]
     Active Substance: ALBUMIN HUMAN
     Indication: HYPOPROTEINAEMIA
     Dosage: 10 GRAM, OD
     Route: 041
     Dates: start: 20201221, end: 20201221

REACTIONS (13)
  - Loss of consciousness [Recovered/Resolved]
  - Muscle spasms [Recovering/Resolving]
  - Dyspnoea [Recovering/Resolving]
  - Erythema [Recovering/Resolving]
  - Hypoaesthesia oral [Recovering/Resolving]
  - Eyelid oedema [Recovered/Resolved]
  - Chest discomfort [Recovering/Resolving]
  - Foaming at mouth [Recovering/Resolving]
  - Palpitations [Recovering/Resolving]
  - Cyanosis [Recovering/Resolving]
  - Urinary incontinence [Recovering/Resolving]
  - Trismus [Recovering/Resolving]
  - Lip oedema [Recovered/Resolved]

NARRATIVE: CASE EVENT DATE: 20201221
